FAERS Safety Report 5334037-5 (Version None)
Quarter: 2007Q2

REPORT INFORMATION
  Report Type: 
  Country: None (occurrence: None)
  Receive Date: 20070524
  Receipt Date: 20070523
  Transmission Date: 20071010
  Serious: Yes (Life-Threatening)
  Sender: FDA-Public Use
  Company Number: GB-BOEHRINGER INGELHEIM PHARMACEUTICALS, INC.-2007-UK-01695UK

PATIENT
  Age: 63 Year
  Sex: Male
  Weight: 77 kg

DRUGS (12)
  1. SPIRIVA [Suspect]
     Indication: CHRONIC OBSTRUCTIVE PULMONARY DISEASE
     Route: 055
     Dates: start: 20070502, end: 20070502
  2. ADCAL-D3 [Concomitant]
     Dosage: 1DF
  3. ALENDRONATE SODIUM [Concomitant]
  4. AMITRIPTYLINE HCL [Concomitant]
  5. BENDROFLUMETHIAZIDE [Concomitant]
  6. BUDESONIDE [Concomitant]
     Dosage: 2DF
     Route: 055
  7. CO-CODAMOL [Concomitant]
  8. FORMOTEROL FUMARATE [Concomitant]
     Route: 055
  9. IPRATROPIUM BROMIDE [Concomitant]
     Route: 055
  10. RAMIPRIL [Concomitant]
  11. SALBUTAMOL [Concomitant]
     Route: 055
  12. TRAMADOL HCL [Concomitant]

REACTIONS (4)
  - BALANCE DISORDER [None]
  - CONFUSIONAL STATE [None]
  - NEUROLOGICAL SYMPTOM [None]
  - SENSORY DISTURBANCE [None]
